FAERS Safety Report 17443076 (Version 1)
Quarter: 2020Q1

REPORT INFORMATION
  Report Type: Report from Study
  Country: US (occurrence: US)
  Receive Date: 20200221
  Receipt Date: 20200221
  Transmission Date: 20200409
  Serious: Yes (Hospitalization, Other)
  Sender: FDA-Public Use
  Company Number: US-BRISTOL-MYERS SQUIBB COMPANY-BMS-2020-014013

PATIENT
  Age: 62 Year
  Sex: Male
  Weight: 63.5 kg

DRUGS (3)
  1. TRABECTEDIN [Suspect]
     Active Substance: TRABECTEDIN
     Indication: SYNOVIAL SARCOMA
     Dosage: 1.5 MG (REDUCED FROM INITIAL 2.3MG), Q3WKS
     Route: 042
     Dates: start: 20180405, end: 20190104
  2. NIVOLUMAB [Suspect]
     Active Substance: NIVOLUMAB
     Indication: SYNOVIAL SARCOMA
     Dosage: 224 MILLIGRAM, Q2WK
     Route: 042
     Dates: start: 20180405, end: 20190104
  3. IPILIMUMAB [Suspect]
     Active Substance: IPILIMUMAB
     Indication: SYNOVIAL SARCOMA
     Dosage: 75 MILLIGRAM, Q12WKS
     Route: 042
     Dates: start: 20180419, end: 20181005

REACTIONS (1)
  - Acute monocytic leukaemia [Not Recovered/Not Resolved]

NARRATIVE: CASE EVENT DATE: 20200207
